FAERS Safety Report 15593983 (Version 2)
Quarter: 2020Q2

REPORT INFORMATION
  Report Type: Spontaneous
  Country: US (occurrence: US)
  Receive Date: 20181106
  Receipt Date: 20200409
  Transmission Date: 20200713
  Serious: No
  Sender: FDA-Public Use
  Company Number: US-PFIZER INC-2018450896

PATIENT
  Age: 78 Year
  Sex: Female

DRUGS (6)
  1. METHOTREXATE SODIUM. [Suspect]
     Active Substance: METHOTREXATE SODIUM
  2. DOXYCYCLINE HYCLATE. [Suspect]
     Active Substance: DOXYCYCLINE HYCLATE
  3. FOSAMAX [Suspect]
     Active Substance: ALENDRONATE SODIUM
  4. CIMZIA [Suspect]
     Active Substance: CERTOLIZUMAB PEGOL
  5. PROLIA [Suspect]
     Active Substance: DENOSUMAB
  6. OXYCODONE [Suspect]
     Active Substance: OXYCODONE

REACTIONS (1)
  - Drug hypersensitivity [Unknown]
